FAERS Safety Report 6756568-3 (Version None)
Quarter: 2010Q2

REPORT INFORMATION
  Report Type: 
  Country: None (occurrence: None)
  Receive Date: 20100604
  Receipt Date: 20100221
  Transmission Date: 20101027
  Serious: No
  Sender: FDA-Public Use
  Company Number: A0847191A

PATIENT
  Sex: Male

DRUGS (1)
  1. LAMICTAL [Suspect]
     Route: 065

REACTIONS (1)
  - AMNESIA [None]
